FAERS Safety Report 4823489-2 (Version None)
Quarter: 2005Q4

REPORT INFORMATION
  Report Type: 
  Country: None (occurrence: None)
  Receive Date: 20051107
  Receipt Date: 20051031
  Transmission Date: 20060501
  Serious: Yes (Hospitalization)
  Sender: FDA-Public Use
  Company Number: 2005PV003627

PATIENT
  Age: 79 Year
  Sex: Female

DRUGS (4)
  1. BYETTA [Suspect]
     Indication: DIABETES MELLITUS
     Dosage: 5 MCG BID SC; 10 MCG BID SC
     Route: 058
     Dates: start: 20050720, end: 20050922
  2. BYETTA [Suspect]
     Indication: DIABETES MELLITUS
     Dosage: 5 MCG BID SC; 10 MCG BID SC
     Route: 058
     Dates: start: 20050923, end: 20051015
  3. LANTUS [Concomitant]
  4. GLUCOPHAGE [Concomitant]

REACTIONS (3)
  - BLOOD GLUCOSE INCREASED [None]
  - CEREBRAL HAEMORRHAGE [None]
  - CEREBROVASCULAR ACCIDENT [None]
